FAERS Safety Report 4505085-X (Version None)
Quarter: 2004Q4

REPORT INFORMATION
  Report Type: 
  Country: None (occurrence: None)
  Receive Date: 20041117
  Receipt Date: 20041117
  Transmission Date: 20050328
  Serious: Yes (Hospitalization)
  Sender: FDA-Public Use
  Company Number: None

PATIENT
  Age: 82 Year
  Sex: Male

DRUGS (13)
  1. PHENYTOIN [Suspect]
     Indication: CONVULSION
     Dosage: 600 MG TID
     Dates: start: 19980801
  2. FELODIPINE [Concomitant]
  3. ISOSORBIDE [Concomitant]
  4. TEMAZE [Concomitant]
  5. FERROUS SULFATE TAB [Concomitant]
  6. LORATADINE [Concomitant]
  7. TYLENOL (CAPLET) [Concomitant]
  8. FOLIC ACID [Concomitant]
  9. METOPROLOL [Concomitant]
  10. CIPRO [Concomitant]
  11. GUAIFENESIN [Concomitant]
  12. ZOCOR [Concomitant]
  13. NITROGLYCERIN [Concomitant]

REACTIONS (2)
  - MENTAL STATUS CHANGES [None]
  - SOMNOLENCE [None]
